FAERS Safety Report 16489666 (Version 1)
Quarter: 2019Q2

REPORT INFORMATION
  Report Type: Spontaneous
  Country: US (occurrence: US)
  Receive Date: 20190628
  Receipt Date: 20190628
  Transmission Date: 20190711
  Serious: Yes (Other)
  Sender: FDA-Public Use
  Company Number: US-ACCORD-071195

PATIENT
  Sex: Female

DRUGS (1)
  1. CLONAZEPAM ACCORD [Suspect]
     Active Substance: CLONAZEPAM
     Indication: SEIZURE

REACTIONS (4)
  - Muscular weakness [Recovered/Resolved]
  - Product substitution issue [Unknown]
  - Hypersensitivity [Recovered/Resolved]
  - Feeling abnormal [Recovered/Resolved]
